FAERS Safety Report 12286832 (Version 3)
Quarter: 2016Q2

REPORT INFORMATION
  Report Type: Spontaneous
  Country: FR (occurrence: FR)
  Receive Date: 20160420
  Receipt Date: 20160621
  Transmission Date: 20160815
  Serious: Yes (Other)
  Sender: FDA-Public Use
  Company Number: FR-009507513-1604FRA011173

PATIENT
  Sex: Male
  Weight: 75 kg

DRUGS (38)
  1. NOVORAPID [Interacting]
     Active Substance: INSULIN ASPART
     Dosage: 3 DF, QD
  2. NOVORAPID [Interacting]
     Active Substance: INSULIN ASPART
     Dosage: 3 DF, QD (DAILY AVERAGE DOSE 79.4 (UNITS NOT PROVIDED))
     Dates: start: 20160111, end: 20160117
  3. LANTUS [Interacting]
     Active Substance: INSULIN GLARGINE
     Dosage: 1 DF, QPM, DAILY AVERAGE DOSE WAS 49.28
     Dates: start: 20151026, end: 20151101
  4. LANTUS [Interacting]
     Active Substance: INSULIN GLARGINE
     Dosage: 1 DF, QPM, DAILY AVERAGE DOSE WAS 47.7
     Dates: start: 20151130, end: 20151206
  5. LANTUS [Interacting]
     Active Substance: INSULIN GLARGINE
     Dosage: 1 DF, QPM, DOSE OF LANTUS WAS 50
     Dates: start: 20160307
  6. LASILIX [Concomitant]
     Active Substance: FUROSEMIDE
     Dosage: 80MG FOR 10 DAYS
     Dates: start: 20151208
  7. EZETROL [Suspect]
     Active Substance: EZETIMIBE
     Indication: BLOOD CHOLESTEROL ABNORMAL
     Dosage: UNK
     Route: 048
  8. NOVORAPID [Interacting]
     Active Substance: INSULIN ASPART
     Dosage: 3 DF, QD (DAILY AVERAGE DOSE 57.5 (UNITS NOT PROVIDED))
     Dates: start: 20151026, end: 20151101
  9. NOVORAPID [Interacting]
     Active Substance: INSULIN ASPART
     Dosage: 3 DF, QD (DAILY AVERAGE DOSE 61 (UNITS NOT PROVIDED))
     Dates: start: 20151214, end: 20151220
  10. NOVORAPID [Interacting]
     Active Substance: INSULIN ASPART
     Dosage: 3 DF, QD (DAILY AVERAGE DOSE 64.8 (UNITS NOT PROVIDED))
     Dates: start: 20151221, end: 20151227
  11. NOVORAPID [Interacting]
     Active Substance: INSULIN ASPART
     Dosage: 3 DF, QD (DAILY AVERAGE DOSE 69.8 (UNITS NOT PROVIDED))
     Dates: start: 20151228, end: 20160103
  12. NOVORAPID [Interacting]
     Active Substance: INSULIN ASPART
     Dosage: 3 DF, QD (DAILY AVERAGE DOSE 75.8 (UNITS NOT PROVIDED))
     Dates: start: 20160104, end: 20160110
  13. LASILIX [Concomitant]
     Active Substance: FUROSEMIDE
     Dosage: 40 MG, UNKNOWN
     Dates: start: 20160221
  14. NOVORAPID [Interacting]
     Active Substance: INSULIN ASPART
     Dosage: 3 DF, QD (DAILY AVERAGE DOSE 79.1 (UNITS NOT PROVIDED))
     Dates: start: 20160201, end: 20160207
  15. NOVORAPID [Interacting]
     Active Substance: INSULIN ASPART
     Dosage: 3 DF, QD (DAILY AVERAGE DOSE 72.5 (UNITS NOT PROVIDED))
     Dates: start: 20160215, end: 20160221
  16. CRESTOR [Concomitant]
     Active Substance: ROSUVASTATIN CALCIUM
     Indication: BLOOD CHOLESTEROL INCREASED
  17. TEMESTA [Concomitant]
     Active Substance: LORAZEPAM
     Indication: ANXIOLYTIC THERAPY
     Dosage: UNK
  18. LIPTRUZET [Interacting]
     Active Substance: ATORVASTATIN CALCIUM\EZETIMIBE
     Indication: HYPERCHOLESTEROLAEMIA
     Dosage: 1 DF, QD
     Route: 048
     Dates: start: 20151208, end: 20160131
  19. NOVORAPID [Interacting]
     Active Substance: INSULIN ASPART
     Dosage: 3 DF, QD (DAILY AVERAGE DOSE 66.7 (UNITS NOT PROVIDED))
     Dates: start: 20160229, end: 20160306
  20. NOVORAPID [Interacting]
     Active Substance: INSULIN ASPART
     Dosage: 3 DF, QD (DAILY AVERAGE DOSE 62 (UNITS NOT PROVIDED))
     Dates: start: 20160307
  21. LANTUS [Interacting]
     Active Substance: INSULIN GLARGINE
     Dosage: 1 DF, QPM, DAILY AVERAGE DOSE WAS 48.4
     Dates: start: 20160229, end: 20160306
  22. LIBRIUM [Concomitant]
     Active Substance: CHLORDIAZEPOXIDE HYDROCHLORIDE
     Indication: ANXIOLYTIC THERAPY
     Dosage: UNK
  23. NOVORAPID [Interacting]
     Active Substance: INSULIN ASPART
     Dosage: 3 DF, QD (DAILY AVERAGE DOSE 78.1 (UNITS NOT PROVIDED))
     Dates: start: 20160118, end: 20160124
  24. NOVORAPID [Interacting]
     Active Substance: INSULIN ASPART
     Dosage: 3 DF, QD (DAILY AVERAGE DOSE 76.1 (UNITS NOT PROVIDED))
     Dates: start: 20160125, end: 20160131
  25. NOVORAPID [Interacting]
     Active Substance: INSULIN ASPART
     Dosage: 3 DF, QD (DAILY AVERAGE DOSE 71.1 (UNITS NOT PROVIDED))
     Dates: start: 20160222, end: 20160228
  26. LANTUS [Interacting]
     Active Substance: INSULIN GLARGINE
     Dosage: 1 DF, QPM
  27. NOVORAPID [Interacting]
     Active Substance: INSULIN ASPART
     Dosage: 3 DF, QD (DAILY AVERAGE DOSE 58.4 (UNITS NOT PROVIDED))
     Dates: start: 20151207, end: 20151213
  28. LASILIX [Concomitant]
     Active Substance: FUROSEMIDE
     Dosage: 40 MG, UNKNOWN
     Dates: start: 20151221
  29. VASTEN [Concomitant]
     Active Substance: PRAVASTATIN SODIUM
     Indication: BLOOD CHOLESTEROL INCREASED
  30. COVERAM [Concomitant]
     Active Substance: AMLODIPINE\PERINDOPRIL
     Indication: HYPERTENSION
     Dosage: 1 DF, QD (STRENGTH 10/5 (UNITS NOT PROVIDED))
     Route: 048
     Dates: start: 201512
  31. BISOPROLOL [Concomitant]
     Active Substance: BISOPROLOL
     Indication: CORONARY ARTERY DISEASE
     Dosage: 1 DF, QD, STRENGTH 10 (UNITS NOT PROVIDED)
     Route: 048
     Dates: start: 1993
  32. NOVORAPID [Interacting]
     Active Substance: INSULIN ASPART
     Dosage: 3 DF, QD (DAILY AVERAGE DOSE 56 (UNITS NOT PROVIDED))
     Dates: start: 20151130, end: 20151206
  33. LANTUS [Interacting]
     Active Substance: INSULIN GLARGINE
     Dosage: 1 DF, QPM, DAILY AVERAGE DOSE WAS 51.4
     Dates: start: 20160125, end: 20160131
  34. LASILIX [Concomitant]
     Active Substance: FUROSEMIDE
     Dosage: 80 MG, UNKNOWN
     Dates: start: 20160207
  35. KARDEGIC [Concomitant]
     Active Substance: ASPIRIN LYSINE
     Indication: CORONARY ARTERY DISEASE
     Dosage: 1 DF, QD (STRENGTH 75 (UNITS NOT PROVIDED))
     Route: 048
     Dates: start: 1993
  36. LASILIX [Concomitant]
     Active Substance: FUROSEMIDE
     Indication: HYPERTENSION
     Dosage: 1 DF, QD, STRENGTH 20
     Dates: start: 1993
  37. NOVORAPID [Interacting]
     Active Substance: INSULIN ASPART
     Dosage: 3 DF, QD (DAILY AVERAGE DOSE 71 (UNITS NOT PROVIDED))
     Dates: start: 20160208, end: 20160214
  38. LIPANTHYL [Concomitant]
     Active Substance: FENOFIBRATE
     Indication: BLOOD CHOLESTEROL INCREASED

REACTIONS (8)
  - Cardiac operation [Unknown]
  - Inhibitory drug interaction [Unknown]
  - Diabetes mellitus inadequate control [Unknown]
  - Diabetes mellitus [Unknown]
  - Blood creatinine increased [Unknown]
  - Increased insulin requirement [Recovering/Resolving]
  - Road traffic accident [Unknown]
  - Peripheral swelling [Unknown]
